FAERS Safety Report 11748529 (Version 1)
Quarter: 2015Q4

REPORT INFORMATION
  Report Type: Report from Study
  Country: US (occurrence: US)
  Receive Date: 20151117
  Receipt Date: 20151117
  Transmission Date: 20160304
  Serious: Yes (Hospitalization, Other)
  Sender: FDA-Public Use
  Company Number: US-AMGEN-USASL2015121016

PATIENT
  Sex: Male

DRUGS (1)
  1. ENBREL [Suspect]
     Active Substance: ETANERCEPT
     Indication: RHEUMATOID ARTHRITIS
     Dosage: 50 MG, QWK
     Route: 065
     Dates: start: 201203

REACTIONS (7)
  - Cervical vertebral fracture [Unknown]
  - Upper limb fracture [Unknown]
  - Disorientation [Recovered/Resolved]
  - Dysphonia [Recovered/Resolved]
  - Road traffic accident [Unknown]
  - Skull fracture [Unknown]
  - Memory impairment [Unknown]
